FAERS Safety Report 6794002-8 (Version None)
Quarter: 2010Q2

REPORT INFORMATION
  Report Type: 
  Country: None (occurrence: None)
  Receive Date: 20100624
  Receipt Date: 20021213
  Transmission Date: 20101027
  Serious: No
  Sender: FDA-Public Use
  Company Number: US-PFIZER INC-23100172

PATIENT
  Age: 64 Year
  Sex: Female

DRUGS (3)
  1. ARGATROBAN [Suspect]
  2. GLYBURIDE [Concomitant]
     Indication: DIABETES MELLITUS
  3. ACTOS [Concomitant]
     Indication: DIABETES MELLITUS

REACTIONS (1)
  - LIVER FUNCTION TEST ABNORMAL [None]
